FAERS Safety Report 10227084 (Version 4)
Quarter: 2018Q1

REPORT INFORMATION
  Report Type: Report from Study
  Country: US (occurrence: US)
  Receive Date: 20140610
  Receipt Date: 20180328
  Transmission Date: 20180508
  Serious: Yes (Hospitalization, Other)
  Sender: FDA-Public Use
  Company Number: US-ROCHE-1410342

PATIENT
  Age: 6 Month
  Sex: Male
  Weight: 22.3 kg

DRUGS (21)
  1. CLONIDINE. [Concomitant]
     Active Substance: CLONIDINE
     Dosage: AT BEDTIME
     Route: 048
  2. DDAVP [Concomitant]
     Active Substance: DESMOPRESSIN ACETATE
     Route: 048
  3. DDAVP [Concomitant]
     Active Substance: DESMOPRESSIN ACETATE
     Route: 048
  4. DIURIL (UNITED STATES) [Concomitant]
     Route: 048
  5. LEVOTHYROXINE. [Concomitant]
     Active Substance: LEVOTHYROXINE
     Route: 065
  6. PREVACID [Concomitant]
     Active Substance: LANSOPRAZOLE
     Route: 048
  7. MELATONIN [Concomitant]
     Active Substance: MELATONIN
     Dosage: EVERY EVENING
     Route: 048
  8. LOTRIMIN (UNITED STATES) [Concomitant]
     Dosage: TROPICAL CREAM
     Route: 065
  9. NUTROPIN AQ [Suspect]
     Active Substance: SOMATROPIN
     Indication: GROWTH HORMONE DEFICIENCY
     Route: 058
     Dates: start: 20120121
  10. NUTROPIN AQ [Suspect]
     Active Substance: SOMATROPIN
     Route: 058
  11. NUTROPIN AQ [Suspect]
     Active Substance: SOMATROPIN
     Indication: HYPOPITUITARISM
     Route: 058
  12. NUTROPIN AQ [Suspect]
     Active Substance: SOMATROPIN
     Route: 058
  13. SYNTHROID [Concomitant]
     Active Substance: LEVOTHYROXINE SODIUM
     Route: 048
  14. MIRALAX [Concomitant]
     Active Substance: POLYETHYLENE GLYCOL 3350
     Indication: CONSTIPATION
     Dosage: 4 TEASPOONS IN 4-8 OUNCES OF LIQUID
     Route: 048
  15. MIRALAX [Concomitant]
     Active Substance: POLYETHYLENE GLYCOL 3350
     Route: 048
  16. LEVOTHYROXINE. [Concomitant]
     Active Substance: LEVOTHYROXINE
     Route: 048
  17. SOLU-CORTEF [Concomitant]
     Active Substance: HYDROCORTISONE SODIUM SUCCINATE
     Route: 048
  18. SYNTHROID [Concomitant]
     Active Substance: LEVOTHYROXINE SODIUM
     Dosage: 1.5 TAB
     Route: 048
  19. CORTEF [Concomitant]
     Active Substance: HYDROCORTISONE
     Route: 048
  20. DDAVP [Concomitant]
     Active Substance: DESMOPRESSIN ACETATE
     Dosage: 1.5 TAB IN THE AM AND 2.5 TAB IN THE PM
     Route: 048
  21. SENNA [Concomitant]
     Active Substance: SENNA LEAF\SENNOSIDES\SENNOSIDES A AND B

REACTIONS (27)
  - Urine odour abnormal [Recovered/Resolved]
  - Chills [Unknown]
  - Dysphagia [Unknown]
  - Temperature regulation disorder [Unknown]
  - Hypotonia [Unknown]
  - Pupillary reflex impaired [Unknown]
  - Nasopharyngitis [Unknown]
  - Developmental delay [Unknown]
  - Haemorrhoids [Unknown]
  - Pyrexia [Unknown]
  - Ear infection [Unknown]
  - Conjunctival discolouration [Unknown]
  - Hypernatraemia [Unknown]
  - Growth retardation [Unknown]
  - Sinusitis [Unknown]
  - Weight decreased [Unknown]
  - Upper respiratory tract infection [Unknown]
  - Viral infection [Unknown]
  - Poor quality sleep [Unknown]
  - Haematochezia [Unknown]
  - Blood chloride increased [Unknown]
  - Blindness [Unknown]
  - Limb asymmetry [Unknown]
  - Weight gain poor [Unknown]
  - Hyperacusis [Unknown]
  - Nystagmus [Unknown]
  - Constipation [Unknown]

NARRATIVE: CASE EVENT DATE: 20120215
